FAERS Safety Report 16765062 (Version 1)
Quarter: 2019Q3

REPORT INFORMATION
  Report Type: Report from Study
  Country: None (occurrence: US)
  Receive Date: 20190903
  Receipt Date: 20190903
  Transmission Date: 20191005
  Serious: Yes (Hospitalization)
  Sender: FDA-Public Use
  Company Number: US-ABBVIE-19K-163-2883365-00

PATIENT
  Sex: Female

DRUGS (1)
  1. HUMIRA [Suspect]
     Active Substance: ADALIMUMAB
     Indication: RHEUMATOID ARTHRITIS
     Route: 058
     Dates: start: 20190203, end: 20190806

REACTIONS (3)
  - Autoimmune hepatitis [Unknown]
  - Liver function test increased [Unknown]
  - Alpha tumour necrosis factor increased [Unknown]

NARRATIVE: CASE EVENT DATE: 2019
